FAERS Safety Report 5552032-8 (Version None)
Quarter: 2007Q4

REPORT INFORMATION
  Report Type: 
  Country: None (occurrence: None)
  Receive Date: 20071212
  Receipt Date: 20071203
  Transmission Date: 20080405
  Serious: Yes (Other)
  Sender: FDA-Public Use
  Company Number: DE-PFIZER INC-2007102656

PATIENT
  Sex: Male

DRUGS (1)
  1. SORTIS [Suspect]
     Dosage: DAILY DOSE:10MG
     Route: 048
     Dates: start: 20060101, end: 20071204

REACTIONS (4)
  - ARTHRALGIA [None]
  - LOWER LIMB FRACTURE [None]
  - MUSCLE DISORDER [None]
  - UPPER LIMB FRACTURE [None]
